FAERS Safety Report 9446637 (Version 1)
Quarter: 2013Q3

REPORT INFORMATION
  Report Type: Spontaneous
  Country: US (occurrence: US)
  Receive Date: 20130807
  Receipt Date: 20130807
  Transmission Date: 20140515
  Serious: No
  Sender: FDA-Public Use
  Company Number: US-AMGEN-USASP2013052256

PATIENT
  Age: 71 Year
  Sex: Male

DRUGS (1)
  1. ENBREL [Suspect]
     Indication: RHEUMATOID ARTHRITIS
     Dosage: UNK EVERY 2-3 WEEKS FOR EIGHT YEARS
     Route: 065
     Dates: end: 20130724

REACTIONS (2)
  - Weight decreased [Unknown]
  - Neutropenia [Unknown]
